FAERS Safety Report 9291298 (Version 1)
Quarter: 2012Q4

REPORT INFORMATION
  Report Type: Spontaneous
  Country: US (occurrence: None)
  Receive Date: 20121018
  Receipt Date: 20121018
  Transmission Date: 20130627
  Serious: Yes (Hospitalization)
  Sender: FDA-Public Use
  Company Number: ACO_30479_2012

PATIENT
  Age: 55 Year
  Sex: Female

DRUGS (6)
  1. AMPYRA (DALFAMPRIDINE) TABLET, 10MG [Suspect]
     Indication: DRUG USE FOR UNKNOWN INDICATION
     Dates: start: 20120126
  2. COPAXONE (GLATIRAMER ACETATE) [Suspect]
     Indication: DRUG USE FOR UNKNOWN INDICATION
     Route: 058
  3. ASPIRIN (ACETYLSALICYLIC ACID) [Concomitant]
  4. NAPROXEN (NAPROXEN SODIUM) [Concomitant]
  5. VITAMIN D (ERGOCALCIFEROL) [Concomitant]
  6. FERROUS SULFATE (FERROUS SULFATE) [Concomitant]

REACTIONS (5)
  - Presyncope [None]
  - Dyspnoea [None]
  - Feeling hot [None]
  - Chills [None]
  - Anxiety [None]
